FAERS Safety Report 4289484-X (Version None)
Quarter: 2004Q1

REPORT INFORMATION
  Report Type: 
  Country: None (occurrence: None)
  Receive Date: 20040209
  Receipt Date: 20040209
  Transmission Date: 20041129
  Serious: No
  Sender: FDA-Public Use
  Company Number: None

PATIENT
  Age: 63 Year
  Sex: Male

DRUGS (2)
  1. VINCRISTINE [Suspect]
  2. DOXYRUBICENAT [Suspect]

REACTIONS (2)
  - DEVICE FAILURE [None]
  - MEDICATION ERROR [None]
